FAERS Safety Report 26147725 (Version 1)
Quarter: 2025Q4

REPORT INFORMATION
  Report Type: Spontaneous
  Country: CA (occurrence: CA)
  Receive Date: 20251211
  Receipt Date: 20251211
  Transmission Date: 20260118
  Serious: Yes (Other)
  Sender: Haleon PLC
  Company Number: CA-HALEON-2278576

PATIENT
  Age: 5 Year
  Sex: Female

DRUGS (2)
  1. ADVIL [Suspect]
     Active Substance: IBUPROFEN
     Indication: Drug provocation test
  2. NAPROXEN [Suspect]
     Active Substance: NAPROXEN
     Indication: Drug provocation test
     Dosage: PATIENT ROA: UNKNOWN

REACTIONS (2)
  - Anaphylactic reaction [Unknown]
  - Off label use [Unknown]
